FAERS Safety Report 12637906 (Version 1)
Quarter: 2016Q3

REPORT INFORMATION
  Report Type: Spontaneous
  Country: US (occurrence: US)
  Receive Date: 20160809
  Receipt Date: 20160809
  Transmission Date: 20161109
  Serious: Yes (Other)
  Sender: FDA-Public Use
  Company Number: US-SA-2016SA097496

PATIENT
  Age: 65 Year
  Sex: Male

DRUGS (2)
  1. PRALUENT [Suspect]
     Active Substance: ALIROCUMAB
     Route: 065
  2. ALIROCUMAB PREFILLED PEN [Concomitant]
     Active Substance: ALIROCUMAB

REACTIONS (6)
  - Asthenia [Unknown]
  - Dyspnoea [Unknown]
  - Influenza like illness [Unknown]
  - Myalgia [Unknown]
  - Nasal congestion [Unknown]
  - Flushing [Unknown]

NARRATIVE: CASE EVENT DATE: 201605
